FAERS Safety Report 6040301-7 (Version None)
Quarter: 2009Q1

REPORT INFORMATION
  Report Type: 
  Country: None (occurrence: None)
  Receive Date: 20090116
  Receipt Date: 20080417
  Transmission Date: 20090719
  Serious: No
  Sender: FDA-Public Use
  Company Number: US-BRISTOL-MYERS SQUIBB COMPANY-14072250

PATIENT
  Age: 6 Year
  Sex: Female

DRUGS (2)
  1. ABILIFY [Suspect]
     Indication: AFFECTIVE DISORDER
     Dosage: STARTED AT 5MG/BID;REDUCED TO 2.5MG+5MG/D THEN INCREASED TO 5MG/BID.
     Route: 048
     Dates: start: 20070201
  2. RISPERDAL [Concomitant]

REACTIONS (2)
  - BREAST ENLARGEMENT [None]
  - PRECOCIOUS PUBERTY [None]
